FAERS Safety Report 17130582 (Version 1)
Quarter: 2019Q4

REPORT INFORMATION
  Report Type: Spontaneous
  Country: PT (occurrence: PT)
  Receive Date: 20191209
  Receipt Date: 20191209
  Transmission Date: 20200122
  Serious: Yes (Hospitalization, Disabling)
  Sender: FDA-Public Use
  Company Number: PT-MYLANLABS-2019M1119924

PATIENT
  Age: 50 Year
  Sex: Female

DRUGS (6)
  1. ILOPROST. [Suspect]
     Active Substance: ILOPROST
     Indication: VASODILATATION
     Dosage: 1 DOSAGE FORM, MONTHLY
  2. SILDENAFIL. [Suspect]
     Active Substance: SILDENAFIL
     Indication: VASODILATATION
     Dosage: UNK
  3. NITROGLYCERIN. [Suspect]
     Active Substance: NITROGLYCERIN
     Indication: VASODILATATION
     Dosage: UNK
  4. BOSENTAN. [Suspect]
     Active Substance: BOSENTAN
     Indication: VASODILATATION
     Dosage: UNK
  5. PENTOXIFYLLINE. [Suspect]
     Active Substance: PENTOXIFYLLINE
     Indication: VASODILATATION
     Dosage: UNK
  6. NIFEDIPINE. [Suspect]
     Active Substance: NIFEDIPINE
     Indication: VASODILATATION
     Dosage: UNK

REACTIONS (3)
  - Finger amputation [Unknown]
  - Pneumonia [Unknown]
  - Drug ineffective for unapproved indication [Unknown]
